FAERS Safety Report 14578442 (Version 1)
Quarter: 2018Q1

REPORT INFORMATION
  Report Type: Spontaneous
  Country: US (occurrence: US)
  Receive Date: 20180227
  Receipt Date: 20180227
  Transmission Date: 20180509
  Serious: No
  Sender: FDA-Public Use
  Company Number: US-PERRIGO-17US024875

PATIENT
  Age: 76 Year
  Sex: Female
  Weight: 83.9 kg

DRUGS (2)
  1. SELENIUM SULFIDE. [Suspect]
     Active Substance: SELENIUM SULFIDE
     Dosage: ONE APPLICATION, THREE TIMES A WEEK
     Route: 061
     Dates: start: 201706, end: 20170629
  2. SELENIUM SULFIDE. [Suspect]
     Active Substance: SELENIUM SULFIDE
     Indication: PSORIASIS
     Dosage: ONE APPLICATION, THREE TIMES A WEEK
     Route: 061
     Dates: end: 201706

REACTIONS (1)
  - Drug ineffective for unapproved indication [Unknown]

NARRATIVE: CASE EVENT DATE: 201706
